FAERS Safety Report 8737598 (Version 2)
Quarter: 2012Q4

REPORT INFORMATION
  Report Type: Report from Study
  Country: JP (occurrence: JP)
  Receive Date: 20120822
  Receipt Date: 20120904
  Transmission Date: 20130627
  Serious: Yes (Hospitalization)
  Sender: FDA-Public Use
  Company Number: JP-009507513-1208JPN001474

PATIENT

DRUGS (11)
  1. UNSPECIFIED INGREDIENT [Suspect]
     Indication: TYPE 2 DIABETES MELLITUS
     Dosage: UNK
     Dates: start: 20120613
  2. BLINDED PLACEBO [Suspect]
     Indication: TYPE 2 DIABETES MELLITUS
     Dosage: UNK
     Dates: start: 20120613
  3. UNSPECIFIED INGREDIENT [Suspect]
     Indication: TYPE 2 DIABETES MELLITUS
     Dosage: UNK
     Dates: start: 20120613
  4. UNSPECIFIED INGREDIENT [Suspect]
     Indication: TYPE 2 DIABETES MELLITUS
     Dosage: UNK
     Dates: start: 20120613
  5. METFORMIN HYDROCHLORIDE\SITAGLIPTIN PHOSPHATE [Suspect]
     Indication: TYPE 2 DIABETES MELLITUS
     Dosage: UNK
     Dates: start: 20120613
  6. METFORMIN HYDROCHLORIDE\SITAGLIPTIN PHOSPHATE [Suspect]
     Indication: TYPE 2 DIABETES MELLITUS
     Dosage: daily dose unknown
     Route: 048
     Dates: start: 20120407
  7. DEPAS [Concomitant]
     Indication: INSOMNIA
     Dosage: 1 mg, qd
     Route: 048
     Dates: start: 20010830
  8. ACINON [Concomitant]
     Indication: PROPHYLAXIS AGAINST GASTROINTESTINAL ULCER
     Dosage: 300 mg, qd
     Route: 048
     Dates: start: 201104
  9. BLOPRESS [Concomitant]
     Indication: HYPERTENSION
     Dosage: Divided dose frequency unknown
     Route: 048
     Dates: start: 20020703
  10. NORVASC [Concomitant]
     Indication: HYPERTENSION
     Dosage: Divided dose frequency unknown
     Route: 048
     Dates: start: 200204
  11. PIETENALE [Concomitant]
     Indication: CEREBROVASCULAR ACCIDENT PROPHYLAXIS
     Dosage: Divided dose frequency unknown
     Route: 048
     Dates: start: 200204

REACTIONS (1)
  - Brain stem infarction [Not Recovered/Not Resolved]
